FAERS Safety Report 25182181 (Version 1)
Quarter: 2025Q2

REPORT INFORMATION
  Report Type: Spontaneous
  Country: US (occurrence: US)
  Receive Date: 20250410
  Receipt Date: 20250410
  Transmission Date: 20250716
  Serious: No
  Sender: OPTINOSE INC
  Company Number: US-OptiNose US, Inc-2024OPT000041

PATIENT
  Age: 49 Year
  Sex: Male

DRUGS (1)
  1. XHANCE [Suspect]
     Active Substance: FLUTICASONE PROPIONATE
     Indication: Product used for unknown indication
     Route: 045

REACTIONS (7)
  - Abdominal pain upper [Not Recovered/Not Resolved]
  - Abdominal distension [Not Recovered/Not Resolved]
  - Influenza like illness [Not Recovered/Not Resolved]
  - Food poisoning [Unknown]
  - Headache [Not Recovered/Not Resolved]
  - Abdominal discomfort [Not Recovered/Not Resolved]
  - Fatigue [Unknown]
